FAERS Safety Report 7938060-3 (Version None)
Quarter: 2011Q4

REPORT INFORMATION
  Report Type: 
  Country: None (occurrence: None)
  Receive Date: 20111123
  Receipt Date: 20111115
  Transmission Date: 20120403
  Serious: Yes (Other)
  Sender: FDA-Public Use
  Company Number: CA-ASTRAZENECA-2011SE69152

PATIENT

DRUGS (2)
  1. MERREM [Suspect]
     Route: 042
  2. VALPROATE SODIUM [Interacting]
     Route: 065

REACTIONS (3)
  - COAGULATION TIME SHORTENED [None]
  - CONVULSION [None]
  - DRUG INTERACTION [None]
